FAERS Safety Report 15260249 (Version 1)
Quarter: 2018Q3

REPORT INFORMATION
  Report Type: Spontaneous
  Country: US (occurrence: US)
  Receive Date: 20180809
  Receipt Date: 20180809
  Transmission Date: 20181010
  Serious: No
  Sender: FDA-Public Use
  Company Number: US-SA-2018SA212967

PATIENT
  Age: 43 Year
  Sex: Female

DRUGS (3)
  1. NEOSPORINE [Concomitant]
  2. CORTIZONE 10 [Suspect]
     Active Substance: HYDROCORTISONE
     Indication: PRURITUS
     Dosage: UNK
     Route: 065
     Dates: start: 20180801
  3. MOTRIN [Concomitant]
     Active Substance: IBUPROFEN

REACTIONS (1)
  - Drug ineffective [Unknown]
